FAERS Safety Report 4858092-1 (Version None)
Quarter: 2005Q4

REPORT INFORMATION
  Report Type: 
  Country: None (occurrence: None)
  Receive Date: 20051219
  Receipt Date: 20050510
  Transmission Date: 20060501
  Serious: No
  Sender: FDA-Public Use
  Company Number: US-GLAXOSMITHKLINE-A0557914A

PATIENT
  Age: 52 Year
  Sex: Female

DRUGS (3)
  1. MEMBERS MARK NTS ORIGINAL, 21MG [Suspect]
     Dates: start: 20050510, end: 20050510
  2. NICODERM CQ [Suspect]
     Dates: start: 20050503, end: 20050509
  3. PROTONIX [Concomitant]

REACTIONS (2)
  - NICOTINE DEPENDENCE [None]
  - PALPITATIONS [None]
